FAERS Safety Report 24533145 (Version 3)
Quarter: 2024Q4

REPORT INFORMATION
  Report Type: Spontaneous
  Country: US (occurrence: US)
  Receive Date: 20241022
  Receipt Date: 20241113
  Transmission Date: 20250115
  Serious: Yes (Death, Hospitalization)
  Sender: CSL BEHRING
  Company Number: US-BEH-2024182054

PATIENT
  Sex: Male

DRUGS (3)
  1. PRIVIGEN [Suspect]
     Active Substance: HUMAN IMMUNOGLOBULIN G
     Indication: Chronic inflammatory demyelinating polyradiculoneuropathy
     Dosage: 50 G, Q3W
     Route: 042
     Dates: start: 202002
  2. PRIVIGEN [Suspect]
     Active Substance: HUMAN IMMUNOGLOBULIN G
     Dosage: 5 G, Q3W
     Route: 042
     Dates: start: 202002
  3. EPINEPHRINE [Concomitant]
     Active Substance: EPINEPHRINE

REACTIONS (4)
  - Gallbladder operation [Fatal]
  - Post procedural complication [Fatal]
  - Urinary retention postoperative [Unknown]
  - Therapy interrupted [Unknown]
